FAERS Safety Report 10053090 (Version 3)
Quarter: 2014Q2

REPORT INFORMATION
  Report Type: Spontaneous
  Country: BR (occurrence: BR)
  Receive Date: 20140402
  Receipt Date: 20140507
  Transmission Date: 20141212
  Serious: Yes (Hospitalization, Other)
  Sender: FDA-Public Use
  Company Number: BR-ASTRAZENECA-2014SE21290

PATIENT
  Age: 74 Year
  Sex: Male
  Weight: 58 kg

DRUGS (4)
  1. OMEPRAZOLE [Suspect]
     Indication: GASTRITIS
     Dosage: TWO TIMES A DAY
     Route: 048
     Dates: start: 2010
  2. CRESTOR [Suspect]
     Indication: BLOOD CHOLESTEROL INCREASED
     Route: 048
     Dates: start: 2010, end: 2013
  3. CRESTOR [Suspect]
     Indication: BLOOD CHOLESTEROL INCREASED
     Dosage: AT NIGHT
     Route: 048
     Dates: start: 2013
  4. ASA [Concomitant]
     Indication: ANTICOAGULANT THERAPY
     Dosage: DAILY
     Route: 048

REACTIONS (6)
  - Gastrointestinal carcinoma [Recovering/Resolving]
  - Coronary artery occlusion [Recovered/Resolved]
  - Dacryostenosis acquired [Not Recovered/Not Resolved]
  - Low density lipoprotein increased [Not Recovered/Not Resolved]
  - Myalgia [Recovered/Resolved]
  - Off label use [Not Recovered/Not Resolved]
